FAERS Safety Report 8111045-2 (Version None)
Quarter: 2012Q1

REPORT INFORMATION
  Report Type: 
  Country: None (occurrence: None)
  Receive Date: 20120203
  Receipt Date: 20110314
  Transmission Date: 20120608
  Serious: No
  Sender: FDA-Public Use
  Company Number: US-GLAXOSMITHKLINE-A0918020A

PATIENT
  Age: 36 Year
  Sex: Female

DRUGS (4)
  1. METFORMIN HCL [Concomitant]
  2. ABILIFY [Concomitant]
  3. LAMICTAL [Suspect]
     Indication: BIPOLAR DISORDER
     Dosage: 25MG PER DAY
     Route: 048
     Dates: start: 20110312, end: 20110313
  4. CYMBALTA [Concomitant]

REACTIONS (1)
  - LYMPHADENOPATHY [None]
